FAERS Safety Report 8077974-3 (Version None)
Quarter: 2012Q1

REPORT INFORMATION
  Report Type: 
  Country: None (occurrence: None)
  Receive Date: 20120127
  Receipt Date: 20110105
  Transmission Date: 20120608
  Serious: No
  Sender: FDA-Public Use
  Company Number: US-ABBOTT-11P-163-0695641-00

PATIENT
  Age: 44 Year
  Sex: Female

DRUGS (10)
  1. OMEPRAZOLE [Concomitant]
     Indication: GASTROOESOPHAGEAL REFLUX DISEASE
  2. HUMIRA [Suspect]
     Indication: RHEUMATOID ARTHRITIS
  3. FLEXERIL [Concomitant]
     Indication: RESTLESS LEGS SYNDROME
     Dosage: AT BEDTIME
  4. LORTAB [Concomitant]
     Indication: INTERVERTEBRAL DISC PROTRUSION
     Dosage: UP TO TID
  5. VITAMIN TAB [Concomitant]
     Indication: PRODUCT USED FOR UNKNOWN INDICATION
     Dosage: DAILY
  6. EFFEXOR XR [Concomitant]
     Indication: DEPRESSION
  7. LODINE [Concomitant]
     Indication: RHEUMATOID ARTHRITIS
  8. ENALAPRIL MALEATE [Concomitant]
     Indication: HYPERTENSION
  9. KLONOPIN [Concomitant]
     Indication: ANXIETY
     Dosage: UP TO TID
  10. KLONOPIN [Concomitant]
     Indication: RESTLESS LEGS SYNDROME
     Dosage: UP TO TID

REACTIONS (4)
  - BRONCHITIS [None]
  - APHONIA [None]
  - LARYNGITIS [None]
  - COUGH [None]
